FAERS Safety Report 18364742 (Version 1)
Quarter: 2020Q4

REPORT INFORMATION
  Report Type: Spontaneous
  Country: FR (occurrence: FR)
  Receive Date: 20201009
  Receipt Date: 20201009
  Transmission Date: 20210114
  Serious: Yes (Other)
  Sender: FDA-Public Use
  Company Number: FR-ROCHE-2692130

PATIENT
  Age: 58 Year
  Sex: Male
  Weight: 72 kg

DRUGS (6)
  1. RITUXIMAB. [Suspect]
     Active Substance: RITUXIMAB
     Indication: GRANULOMATOSIS WITH POLYANGIITIS
     Route: 042
     Dates: start: 20200803
  2. ACLASTA [Suspect]
     Active Substance: ZOLEDRONIC ACID
     Indication: OSTEOPOROSIS PROPHYLAXIS
     Route: 042
     Dates: start: 20200731
  3. CORTANCYL [Concomitant]
     Active Substance: PREDNISONE
  4. RULID [Suspect]
     Active Substance: ROXITHROMYCIN
     Indication: URINARY TRACT INFECTION
     Dosage: DATE OF MOST RECENT DOSE: 31/JUL/2020
     Route: 048
     Dates: start: 20200727
  5. AUGMENTIN [Suspect]
     Active Substance: AMOXICILLIN\CLAVULANATE POTASSIUM
     Indication: URINARY TRACT INFECTION
     Dosage: DATE OF MOST RECENT DOSE: 31/JUL/2020
     Route: 042
     Dates: start: 20200725
  6. SOLU-MEDROL [Suspect]
     Active Substance: METHYLPREDNISOLONE SODIUM SUCCINATE
     Indication: GRANULOMATOSIS WITH POLYANGIITIS
     Dosage: DATE OF MOST RECENT DOSE: 02/AUG/2020
     Route: 042
     Dates: start: 20200730

REACTIONS (1)
  - Atrial fibrillation [Recovered/Resolved]

NARRATIVE: CASE EVENT DATE: 20200806
